FAERS Safety Report 7356707-X (Version None)
Quarter: 2011Q1

REPORT INFORMATION
  Report Type: 
  Country: None (occurrence: None)
  Receive Date: 20110316
  Receipt Date: 20110311
  Transmission Date: 20110831
  Serious: Yes (Death)
  Sender: FDA-Public Use
  Company Number: PHHY2011US19811

PATIENT
  Sex: Female
  Weight: 43.5 kg

DRUGS (6)
  1. DIGOXIN [Concomitant]
     Indication: CARDIAC DISORDER
  2. K-DUR [Concomitant]
     Indication: BLOOD POTASSIUM ABNORMAL
  3. FOLIC ACID [Concomitant]
  4. EXJADE [Suspect]
     Indication: MYELODYSPLASTIC SYNDROME
     Dosage: 1500 MG, QD
     Route: 048
  5. SYNTHROID [Concomitant]
     Indication: THYROID DISORDER
  6. PREVACID [Concomitant]

REACTIONS (2)
  - PNEUMONIA [None]
  - COR PULMONALE [None]
